FAERS Safety Report 10197124 (Version 2)
Quarter: 2014Q2

REPORT INFORMATION
  Report Type: Spontaneous
  Country: FR (occurrence: FR)
  Receive Date: 20140527
  Receipt Date: 20140527
  Transmission Date: 20141212
  Serious: Yes (Death, Hospitalization, Other)
  Sender: FDA-Public Use
  Company Number: FR-PFIZER INC-2014131887

PATIENT
  Age: 62 Year
  Sex: Male

DRUGS (1)
  1. LINCOMYCIN HCL [Suspect]
     Dosage: 1.2 G, DAILY
     Route: 030
     Dates: start: 19751008, end: 19751015

REACTIONS (2)
  - Pseudomembranous colitis [Fatal]
  - Septic shock [Fatal]
